FAERS Safety Report 13690304 (Version 1)
Quarter: 2017Q2

REPORT INFORMATION
  Report Type: Spontaneous
  Country: US (occurrence: US)
  Receive Date: 20170623
  Receipt Date: 20170623
  Transmission Date: 20170830
  Serious: Yes (Hospitalization)
  Sender: FDA-Public Use
  Company Number: None

PATIENT
  Age: 80 Year
  Sex: Male
  Weight: 119.1 kg

DRUGS (2)
  1. NAPROXEN. [Suspect]
     Active Substance: NAPROXEN
     Indication: PAIN
     Route: 048
     Dates: start: 20161020, end: 20161123
  2. DABIGATRAN [Suspect]
     Active Substance: DABIGATRAN
     Indication: ATRIAL FIBRILLATION
     Route: 048
     Dates: start: 20160719, end: 20161128

REACTIONS (4)
  - Haemoglobin decreased [None]
  - Upper gastrointestinal haemorrhage [None]
  - Dizziness [None]
  - Gastric haemorrhage [None]

NARRATIVE: CASE EVENT DATE: 20161123
